FAERS Safety Report 18424630 (Version 1)
Quarter: 2020Q4

REPORT INFORMATION
  Report Type: Spontaneous
  Country: IE (occurrence: IE)
  Receive Date: 20201026
  Receipt Date: 20201026
  Transmission Date: 20210114
  Serious: Yes (Other)
  Sender: FDA-Public Use
  Company Number: IE-LUPIN PHARMACEUTICALS INC.-2020-07714

PATIENT
  Age: 4 Year
  Sex: Female

DRUGS (4)
  1. LEVETIRACETAM. [Suspect]
     Active Substance: LEVETIRACETAM
     Dosage: 100 MILLIGRAM/KILOGRAM, QD
     Route: 065
  2. LACOSAMIDE. [Concomitant]
     Active Substance: LACOSAMIDE
     Indication: PARTIAL SEIZURES
     Dosage: 11 MILLIGRAM/KILOGRAM, QD
     Route: 065
  3. LACOSAMIDE. [Concomitant]
     Active Substance: LACOSAMIDE
     Dosage: 17 MILLIGRAM/KILOGRAM, QD
     Route: 065
  4. LEVETIRACETAM. [Suspect]
     Active Substance: LEVETIRACETAM
     Indication: PARTIAL SEIZURES
     Dosage: 80 MILLIGRAM/KILOGRAM, QD
     Route: 065

REACTIONS (1)
  - Therapy non-responder [Unknown]
